FAERS Safety Report 5159100-3 (Version None)
Quarter: 2006Q4

REPORT INFORMATION
  Report Type: 
  Country: None (occurrence: None)
  Receive Date: 20061128
  Receipt Date: 20061124
  Transmission Date: 20070319
  Serious: Yes (Hospitalization)
  Sender: FDA-Public Use
  Company Number: DE-BOEHRINGER INGELHEIM PHARMACEUTICALS, INC.-2006-DE-06237DE

PATIENT
  Sex: Male

DRUGS (5)
  1. CATAPRESAN 150 [Suspect]
     Route: 048
  2. ATORVASTATIN CALCIUM [Suspect]
     Route: 048
  3. CARVEDILOL [Suspect]
     Route: 048
  4. COAPROVEL [Suspect]
     Dosage: 150/12,5
     Route: 048
  5. DOXAZOSIN MESYLATE [Suspect]
     Route: 048

REACTIONS (3)
  - ACCIDENTAL EXPOSURE [None]
  - HYPOTENSION [None]
  - MEDICATION ERROR [None]
